FAERS Safety Report 7351787-X (Version None)
Quarter: 2011Q1

REPORT INFORMATION
  Report Type: 
  Country: None (occurrence: None)
  Receive Date: 20110315
  Receipt Date: 20100921
  Transmission Date: 20110831
  Serious: Yes (Death, Other)
  Sender: FDA-Public Use
  Company Number: US-BAYER-201029799NA

PATIENT
  Sex: Female
  Weight: 65.76 kg

DRUGS (6)
  1. TRI-SPRINTEC [Concomitant]
     Indication: ORAL CONTRACEPTION
     Dosage: UNK
     Dates: start: 20060301, end: 20081001
  2. YASMIN [Suspect]
     Indication: ACNE
  3. UNCODEABLE ^UNCLASSIFIABLE^ [Concomitant]
     Dosage: 4.5 L, UNK
     Dates: start: 20081224
  4. YASMIN [Suspect]
     Indication: CONTRACEPTION
     Dates: start: 20081001, end: 20081224
  5. AMOXICILLIN [Concomitant]
     Indication: OROPHARYNGEAL PAIN
     Dosage: UNK
     Dates: start: 20081210
  6. ADVIL LIQUI-GELS [Concomitant]
     Dosage: UNK UNK, PRN

REACTIONS (20)
  - HYPERGLYCAEMIA [None]
  - DEEP VEIN THROMBOSIS [None]
  - HYPOTHERMIA [None]
  - HEART RATE INCREASED [None]
  - RESPIRATORY RATE INCREASED [None]
  - CYANOSIS [None]
  - MUSCLE CONTRACTIONS INVOLUNTARY [None]
  - BLOOD PRESSURE DECREASED [None]
  - UNRESPONSIVE TO STIMULI [None]
  - DIZZINESS [None]
  - DILATATION VENTRICULAR [None]
  - CONVULSION [None]
  - SYNCOPE [None]
  - HYPOKALAEMIA [None]
  - PULMONARY EMBOLISM [None]
  - CARDIO-RESPIRATORY ARREST [None]
  - MYDRIASIS [None]
  - TACHYCARDIA [None]
  - ELECTROCARDIOGRAM ST-T CHANGE [None]
  - PULSE ABSENT [None]
